FAERS Safety Report 6196426-9 (Version None)
Quarter: 2009Q2

REPORT INFORMATION
  Report Type: 
  Country: None (occurrence: None)
  Receive Date: 20090518
  Receipt Date: 20090518
  Transmission Date: 20091009
  Serious: Yes (Hospitalization)
  Sender: FDA-Public Use
  Company Number: None

PATIENT
  Age: 51 Year
  Sex: Male
  Weight: 117.5 kg

DRUGS (1)
  1. TRILIPIX [Suspect]
     Indication: HYPERLIPIDAEMIA
     Dosage: PO
     Route: 048
     Dates: start: 20090421, end: 20090515

REACTIONS (1)
  - RHABDOMYOLYSIS [None]
